FAERS Safety Report 16435841 (Version 1)
Quarter: 2019Q2

REPORT INFORMATION
  Report Type: Spontaneous
  Country: AU (occurrence: AU)
  Receive Date: 20190614
  Receipt Date: 20190614
  Transmission Date: 20190711
  Serious: Yes (Other)
  Sender: FDA-Public Use
  Company Number: AU-MYLANLABS-2019M1056372

PATIENT
  Age: 5 Year
  Sex: Female

DRUGS (5)
  1. HYDROCORTISONE. [Suspect]
     Active Substance: HYDROCORTISONE
     Indication: DERMATITIS ATOPIC
     Dosage: UNK
     Route: 061
  2. BETAMETHASONE. [Suspect]
     Active Substance: BETAMETHASONE
     Indication: DERMATITIS ATOPIC
     Dosage: 4 TIME DAILY FOLLOWED BY 1 DAY BREAK, BEFORE REPEATING CYCLE; THIS CONTINUED FOR 2 MONTHS
     Route: 061
  3. TACROLIMUS. [Concomitant]
     Active Substance: TACROLIMUS
     Indication: PRODUCT USED FOR UNKNOWN INDICATION
     Dosage: UNK
     Route: 061
  4. PREDNISONE. [Concomitant]
     Active Substance: PREDNISONE
     Indication: ASTHMA
     Dosage: 2 COURSES ORAL PREDNISONE AND A 3RD COURSE FOR ASTHMA.
     Route: 048
  5. MUPIROCIN. [Concomitant]
     Active Substance: MUPIROCIN
     Indication: PRODUCT USED FOR UNKNOWN INDICATION
     Dosage: UNK
     Route: 061

REACTIONS (5)
  - Skin infection [Unknown]
  - Alopecia [Unknown]
  - Body temperature fluctuation [Unknown]
  - Steroid withdrawal syndrome [Recovering/Resolving]
  - Lymphadenopathy [Unknown]
